FAERS Safety Report 6262281-1 (Version None)
Quarter: 2009Q3

REPORT INFORMATION
  Report Type: 
  Country: None (occurrence: None)
  Receive Date: 20090709
  Receipt Date: 20090629
  Transmission Date: 20100115
  Serious: Yes (Other)
  Sender: FDA-Public Use
  Company Number: BR-PFIZER INC-2009233921

PATIENT
  Age: 80 Year

DRUGS (4)
  1. DETRUSITOL LA [Suspect]
     Indication: URINARY INCONTINENCE
     Dosage: 4 MG, 1X/DAY
     Dates: start: 20090501, end: 20090501
  2. RIVOTRIL [Concomitant]
     Dosage: UNK
     Dates: start: 19990101
  3. SIMVASTATIN [Concomitant]
     Dosage: UNK
     Dates: start: 20050101
  4. DOMPERIDONE [Concomitant]
     Dosage: UNK
     Dates: start: 20070101

REACTIONS (2)
  - CONFUSIONAL STATE [None]
  - SYNCOPE [None]
